FAERS Safety Report 4447762-5 (Version None)
Quarter: 2004Q3

REPORT INFORMATION
  Report Type: 
  Country: None (occurrence: None)
  Receive Date: 20040913
  Receipt Date: 20040831
  Transmission Date: 20050211
  Serious: Yes (Other)
  Sender: FDA-Public Use
  Company Number: 200418734GDDC

PATIENT
  Age: 55 Year
  Sex: Female

DRUGS (2)
  1. NASACORT AQ [Suspect]
     Indication: MULTIPLE ALLERGIES
     Route: 045
     Dates: start: 20030619
  2. FEMHRT [Concomitant]
     Indication: MENOPAUSE
     Dosage: DOSE: 1 MG/5 UG
     Route: 048
     Dates: end: 20040601

REACTIONS (1)
  - CATARACT [None]
